FAERS Safety Report 8547055 (Version 5)
Quarter: 2012Q4

REPORT INFORMATION
  Report Type: 
  Country: US (occurrence: US)
  Receive Date: 20120504
  Receipt Date: 20121106
  Transmission Date: 20130627
  Serious: Yes (Hospitalization, Other)
  Sender: FDA-Public Use
  Company Number: US-INCYTE CORPORATION-2012IN000705

PATIENT
  Age: 70 None
  Sex: Female
  Weight: 63.3 kg

DRUGS (14)
  1. JAKAFI [Suspect]
     Indication: MYELOFIBROSIS
     Dosage: 15 mg, bid
     Route: 048
     Dates: start: 201202, end: 201204
  2. JAKAFI [Suspect]
     Dosage: 15 mg, qd
     Route: 048
     Dates: start: 2012, end: 2012
  3. JAKAFI [Suspect]
     Dosage: 15 mg, bid
     Route: 048
     Dates: start: 20120416, end: 20120910
  4. JAKAFI [Suspect]
     Dosage: 15 mg, qd
     Route: 048
     Dates: start: 20121010
  5. B COMPLEX [Concomitant]
     Dosage: UNK
  6. BENADRYL ALLERGY SYRUP [Concomitant]
     Dosage: 1 tsp at bedtime
  7. CALCIUM [Concomitant]
     Dosage: UNK
  8. DETROL [Concomitant]
     Dosage: 2 mg, bid
  9. FERROUS SULFATE [Concomitant]
     Dosage: 325 mg, qd
  10. OMEGA 3 [Concomitant]
     Dosage: UNK
  11. SECTRAL [Concomitant]
     Dosage: UNK
  12. THEOPHYLLINE [Concomitant]
     Dosage: UNK
  13. VICODIN HP [Concomitant]
     Dosage: 5 mg, prn
  14. VITAMIN E [Concomitant]
     Dosage: UNK

REACTIONS (9)
  - Chest discomfort [Recovered/Resolved]
  - Dyspnoea [Recovered/Resolved]
  - Blood pressure increased [Recovered/Resolved]
  - Fatigue [Recovered/Resolved]
  - Pancytopenia [Unknown]
  - Feeling abnormal [Unknown]
  - Platelet count decreased [Unknown]
  - Neutropenia [Recovered/Resolved]
  - Asthenia [None]
